FAERS Safety Report 5396542-5 (Version None)
Quarter: 2007Q3

REPORT INFORMATION
  Report Type: 
  Country: None (occurrence: None)
  Receive Date: 20070725
  Receipt Date: 20070719
  Transmission Date: 20080115
  Serious: Yes (Hospitalization)
  Sender: FDA-Public Use
  Company Number: PHBS2007IE12233

PATIENT
  Sex: Female

DRUGS (4)
  1. SIMULECT [Suspect]
     Indication: TRANSPLANT
     Route: 065
  2. CELLCEPT [Concomitant]
  3. PROGRAF [Concomitant]
  4. CEFTIN [Concomitant]

REACTIONS (1)
  - NEUTROPENIA [None]
